FAERS Safety Report 7716013-8 (Version None)
Quarter: 2011Q3

REPORT INFORMATION
  Report Type: 
  Country: None (occurrence: None)
  Receive Date: 20110823
  Receipt Date: 20110815
  Transmission Date: 20111222
  Serious: Yes (Other)
  Sender: FDA-Public Use
  Company Number: 2010EU004188

PATIENT
  Age: 60 Year
  Sex: Male
  Weight: 60.0109 kg

DRUGS (17)
  1. NOREPINEPHRINE BITARTRATE [Concomitant]
  2. AMOXICILLIN CLAVULANIC ACID (AMOXICILLIN TRIHYDRATE, CLAVULANATE POTAS [Concomitant]
  3. EPINEPHRINE [Concomitant]
  4. TEICOPLANIN (TEICOPLANIN) [Concomitant]
  5. METHYLPREDNISOLONE [Concomitant]
  6. TACROLIMUS [Concomitant]
  7. ENOXAPARIN SODIUM [Concomitant]
  8. PIPERACILLIN W/TAZOBACTAM (PIPERACILLIN, TAZOBACTAM) [Concomitant]
  9. FUROSEMIDE (FUROSEMIDE0 [Concomitant]
  10. MEROPENEM [Concomitant]
  11. PREDNISONE [Concomitant]
  12. URSODIOL [Concomitant]
  13. CIPROFLOXACIN [Concomitant]
  14. HYDROCORTONE [Concomitant]
  15. AMBISOME [Suspect]
     Indication: ANTIFUNGAL PROPHYLAXIS
     Dosage: 120 MG,   /D, IV NOS   60MG,  /D, IV NOS
     Route: 042
     Dates: start: 20100721, end: 20100806
  16. AMBISOME [Suspect]
     Indication: ANTIFUNGAL PROPHYLAXIS
     Dosage: 120 MG,   /D, IV NOS   60MG,  /D, IV NOS
     Route: 042
     Dates: start: 20100715, end: 20100720
  17. INSULINE (INSULIN PORCINE) [Concomitant]

REACTIONS (2)
  - FUNGAL INFECTION [None]
  - DRUG INEFFECTIVE [None]
